FAERS Safety Report 13250962 (Version 1)
Quarter: 2017Q1

REPORT INFORMATION
  Report Type: Spontaneous
  Country: US (occurrence: US)
  Receive Date: 20170220
  Receipt Date: 20170220
  Transmission Date: 20170428
  Serious: No
  Sender: FDA-Public Use
  Company Number: US-TEVA-679787USA

PATIENT
  Sex: Female

DRUGS (4)
  1. PERIDEX [Concomitant]
     Active Substance: CHLORHEXIDINE GLUCONATE
     Indication: BACTERIAL INFECTION
  2. NAPROXEN. [Concomitant]
     Active Substance: NAPROXEN
     Indication: INFLAMMATION
  3. AMOXICILLIN. [Suspect]
     Active Substance: AMOXICILLIN
     Indication: TOOTH DISORDER
     Route: 048
     Dates: start: 20160705
  4. NAPROXEN. [Concomitant]
     Active Substance: NAPROXEN
     Indication: PAIN

REACTIONS (3)
  - Pruritus [Recovered/Resolved]
  - Rash [Recovered/Resolved]
  - Reaction to drug excipients [Recovered/Resolved]

NARRATIVE: CASE EVENT DATE: 2016
